FAERS Safety Report 6818606-9 (Version None)
Quarter: 2010Q3

REPORT INFORMATION
  Report Type: 
  Country: None (occurrence: None)
  Receive Date: 20100706
  Receipt Date: 20090417
  Transmission Date: 20110219
  Serious: No
  Sender: FDA-Public Use
  Company Number: US-PFIZER INC-2009154944

PATIENT
  Age: 80 Year
  Sex: Male

DRUGS (1)
  1. AZITHROMYCIN [Suspect]
     Dosage: UNK

REACTIONS (6)
  - CHEILITIS [None]
  - DYSPHAGIA [None]
  - GINGIVAL PAIN [None]
  - LIP EXFOLIATION [None]
  - ORAL PAIN [None]
  - THROAT TIGHTNESS [None]
